FAERS Safety Report 6080208-2 (Version None)
Quarter: 2009Q1

REPORT INFORMATION
  Report Type: 
  Country: None (occurrence: None)
  Receive Date: 20090217
  Receipt Date: 20090211
  Transmission Date: 20090719
  Serious: Yes (Hospitalization)
  Sender: FDA-Public Use
  Company Number: US-EISAI MEDICAL RESEARCH-E2090-00662-SPO-US

PATIENT
  Sex: Female

DRUGS (3)
  1. ZONEGRAN [Suspect]
     Indication: SIMPLE PARTIAL SEIZURES
     Route: 048
     Dates: start: 20070307, end: 20080630
  2. TEGRETOL [Concomitant]
     Route: 048
     Dates: start: 20070307, end: 20080630
  3. LISINOPRIL [Concomitant]
     Route: 048

REACTIONS (2)
  - ABASIA [None]
  - MYALGIA [None]
